FAERS Safety Report 8767229 (Version 2)
Quarter: 2012Q4

REPORT INFORMATION
  Report Type: Report from Study
  Country: US (occurrence: US)
  Receive Date: 20120904
  Receipt Date: 20121017
  Transmission Date: 20130627
  Serious: Yes (Hospitalization)
  Sender: FDA-Public Use
  Company Number: US-GLAXOSMITHKLINE-A0991822A

PATIENT
  Age: 78 Year
  Sex: Female
  Weight: 66.4 kg

DRUGS (8)
  1. LAPATINIB [Suspect]
     Indication: HEAD AND NECK CANCER
     Dosage: 1250MG Per day
     Route: 048
     Dates: start: 20120521, end: 20120813
  2. CAPECITABINE [Suspect]
     Indication: HEAD AND NECK CANCER
     Dosage: 1300MG Twice per day
     Route: 048
     Dates: start: 20120703, end: 20120806
  3. METOPROLOL [Concomitant]
  4. NIFEDIPINE [Concomitant]
  5. TYLENOL [Concomitant]
  6. IMODIUM [Concomitant]
  7. MARINOL [Concomitant]
     Dosage: 2.5MG Twice per day
  8. UNKNOWN [Concomitant]

REACTIONS (6)
  - Diarrhoea [Recovered/Resolved]
  - Nausea [Recovered/Resolved]
  - Vomiting [Recovered/Resolved]
  - Urinary tract infection [Recovered/Resolved]
  - Renal failure acute [Recovered/Resolved]
  - Sepsis [Recovered/Resolved]
